FAERS Safety Report 20777109 (Version 1)
Quarter: 2022Q2

REPORT INFORMATION
  Report Type: Report from Study
  Country: NL (occurrence: NL)
  Receive Date: 20220503
  Receipt Date: 20220503
  Transmission Date: 20220721
  Serious: Yes (Hospitalization)
  Sender: FDA-Public Use
  Company Number: NL-AstraZeneca-2022A104937

PATIENT
  Age: 0 Year
  Sex: Male
  Weight: 6.9 kg

DRUGS (6)
  1. SYNAGIS [Suspect]
     Active Substance: PALIVIZUMAB
     Indication: Premature baby
     Route: 030
     Dates: start: 20220117
  2. SYNAGIS [Suspect]
     Active Substance: PALIVIZUMAB
     Indication: Small for dates baby
     Route: 030
     Dates: start: 20220117
  3. SYNAGIS [Suspect]
     Active Substance: PALIVIZUMAB
     Indication: Respiratory syncytial virus infection
     Route: 030
     Dates: start: 20220117
  4. SYNAGIS [Suspect]
     Active Substance: PALIVIZUMAB
     Indication: Premature baby
     Route: 030
     Dates: start: 20220214
  5. SYNAGIS [Suspect]
     Active Substance: PALIVIZUMAB
     Indication: Small for dates baby
     Route: 030
     Dates: start: 20220214
  6. SYNAGIS [Suspect]
     Active Substance: PALIVIZUMAB
     Indication: Respiratory syncytial virus infection
     Route: 030
     Dates: start: 20220214

REACTIONS (2)
  - Vascular device infection [Unknown]
  - Inappropriate schedule of product administration [Recovered/Resolved]

NARRATIVE: CASE EVENT DATE: 20220317
